FAERS Safety Report 11409382 (Version 1)
Quarter: 2015Q3

REPORT INFORMATION
  Report Type: Spontaneous
  Country: US (occurrence: None)
  Receive Date: 20150820
  Receipt Date: 20150820
  Transmission Date: 20151125
  Serious: Yes (Disabling)
  Sender: FDA-Public Use
  Company Number: None

PATIENT
  Age: 60 Year
  Sex: Female
  Weight: 70.31 kg

DRUGS (8)
  1. VITAMIN D [Concomitant]
     Active Substance: CHOLECALCIFEROL
  2. MINIVELLE [Suspect]
     Active Substance: ESTRADIOL
     Indication: OSTEOPOROSIS
     Dosage: 1 PATCH, TWICE WEEKLY, APPLIED AS MEDICATED PATCH TO SKIN
     Dates: start: 20150710, end: 20150810
  3. VAGINAL CREAM [Concomitant]
  4. CALTRATE [Concomitant]
     Active Substance: CALCIUM CARBONATE
  5. MINIVELLE [Suspect]
     Active Substance: ESTRADIOL
     Indication: MENOPAUSAL SYMPTOMS
     Dosage: 1 PATCH, TWICE WEEKLY, APPLIED AS MEDICATED PATCH TO SKIN
     Dates: start: 20150710, end: 20150810
  6. TIROSINT [Concomitant]
     Active Substance: LEVOTHYROXINE SODIUM
  7. CRANBERRY SUPPLEMENT [Concomitant]
  8. VIVELLE [Concomitant]
     Active Substance: ESTRADIOL

REACTIONS (4)
  - Headache [None]
  - Product substitution issue [None]
  - Application site burn [None]
  - Fatigue [None]

NARRATIVE: CASE EVENT DATE: 20150720
